FAERS Safety Report 5217771-7 (Version None)
Quarter: 2006Q4

REPORT INFORMATION
  Report Type: 
  Country: None (occurrence: None)
  Receive Date: 20061130
  Receipt Date: 20060922
  Transmission Date: 20070319
  Serious: Yes (Hospitalization, Other)
  Sender: FDA-Public Use
  Company Number: US200606003437

PATIENT
  Age: 46 Year
  Sex: Female
  Weight: 105.2 kg

DRUGS (2)
  1. ZYPREXA [Suspect]
     Dosage: SEE IMAGE
     Route: 048
     Dates: start: 19990101
  2. ZYPREXA [Suspect]
     Dosage: SEE IMAGE
     Route: 048
     Dates: start: 20020823

REACTIONS (4)
  - DEHYDRATION [None]
  - DIABETES MELLITUS NON-INSULIN-DEPENDENT [None]
  - HYPERGLYCAEMIA [None]
  - VAGINAL CANDIDIASIS [None]
